FAERS Safety Report 25012966 (Version 1)
Quarter: 2025Q1

REPORT INFORMATION
  Report Type: Spontaneous
  Country: US (occurrence: None)
  Receive Date: 20250225
  Receipt Date: 20250225
  Transmission Date: 20250409
  Serious: Yes (Hospitalization)
  Sender: FDA-CTU
  Company Number: None

PATIENT
  Age: 51 Year
  Sex: Female

DRUGS (2)
  1. PRALUENT [Suspect]
     Active Substance: ALIROCUMAB
     Route: 058
     Dates: start: 20220816
  2. TYLENOL [Concomitant]
     Active Substance: ACETAMINOPHEN

REACTIONS (6)
  - Loss of consciousness [None]
  - Thrombosis [None]
  - Cardio-respiratory arrest [None]
  - Amnesia [None]
  - Device failure [None]
  - Therapy interrupted [None]

NARRATIVE: CASE EVENT DATE: 20250114
